FAERS Safety Report 13576155 (Version 1)
Quarter: 2017Q2

REPORT INFORMATION
  Report Type: Spontaneous
  Country: US (occurrence: US)
  Receive Date: 20170523
  Receipt Date: 20170523
  Transmission Date: 20170830
  Serious: Yes (Death, Hospitalization)
  Sender: FDA-Public Use
  Company Number: None

PATIENT
  Age: 71 Year
  Sex: Male

DRUGS (1)
  1. POMALYST [Suspect]
     Active Substance: POMALIDOMIDE
     Indication: PLASMA CELL MYELOMA
     Route: 048
     Dates: start: 20130806

REACTIONS (4)
  - Acute hepatic failure [None]
  - Acute kidney injury [None]
  - Pancreatitis acute [None]
  - Cardiopulmonary failure [None]

NARRATIVE: CASE EVENT DATE: 20130905
